FAERS Safety Report 11724267 (Version 1)
Quarter: 2015Q4

REPORT INFORMATION
  Report Type: Spontaneous
  Country: GB (occurrence: GB)
  Receive Date: 20151111
  Receipt Date: 20151111
  Transmission Date: 20160304
  Serious: Yes (Hospitalization, Other)
  Sender: FDA-Public Use
  Company Number: GB-GLAXOSMITHKLINE-GB2015160799

PATIENT
  Age: 68 Year
  Sex: Male

DRUGS (7)
  1. LAMOTRIGINE. [Suspect]
     Active Substance: LAMOTRIGINE
     Indication: GENERALISED TONIC-CLONIC SEIZURE
     Route: 048
     Dates: start: 20151026, end: 20151027
  2. SYMBICORT [Concomitant]
     Active Substance: BUDESONIDE\FORMOTEROL FUMARATE DIHYDRATE
  3. OMEPRAZOLE. [Concomitant]
     Active Substance: OMEPRAZOLE
  4. TIOTROPIUM [Concomitant]
     Active Substance: TIOTROPIUM
  5. CELECOXIB. [Concomitant]
     Active Substance: CELECOXIB
  6. ASPIRIN. [Concomitant]
     Active Substance: ASPIRIN
  7. SIMVASTATIN. [Concomitant]
     Active Substance: SIMVASTATIN

REACTIONS (3)
  - Confusional state [Unknown]
  - Disorientation [Unknown]
  - Delirium [Unknown]

NARRATIVE: CASE EVENT DATE: 20151026
